FAERS Safety Report 17132642 (Version 1)
Quarter: 2019Q4

REPORT INFORMATION
  Report Type: Spontaneous
  Country: US (occurrence: US)
  Receive Date: 20191115
  Receipt Date: 20191115
  Transmission Date: 20200122
  Serious: No
  Sender: FDA-Public Use
  Company Number: None

PATIENT
  Age: 56 Year
  Sex: Male
  Weight: 86.18 kg

DRUGS (3)
  1. HA PLUS [Concomitant]
  2. NUTRITIONAL FRONTIERS FULL SPECTRUM HEMP EXTREME OIL (HEMP EXTRACT) [Suspect]
     Active Substance: DIETARY SUPPLEMENT\HEMP
     Indication: PAIN
     Dosage: ??          QUANTITY:1 ML MILLILITRE(S);OTHER FREQUENCY:1 TIME A DAY ABOUT;?
     Route: 048
  3. B MAX [Concomitant]

REACTIONS (3)
  - Drug screen positive [None]
  - Loss of employment [None]
  - Suspected counterfeit product [None]

NARRATIVE: CASE EVENT DATE: 20190923
